FAERS Safety Report 18509340 (Version 1)
Quarter: 2020Q4

REPORT INFORMATION
  Report Type: Report from Study
  Country: None (occurrence: IT)
  Receive Date: 20201117
  Receipt Date: 20201117
  Transmission Date: 20210114
  Serious: Yes (Death)
  Sender: FDA-Public Use
  Company Number: IT-ABBVIE-20K-083-3650997-00

PATIENT
  Age: 82 Year
  Sex: Female

DRUGS (2)
  1. DUODOPA [Suspect]
     Active Substance: CARBIDOPA\LEVODOPA
  2. DUODOPA [Suspect]
     Active Substance: CARBIDOPA\LEVODOPA
     Indication: PARKINSON^S DISEASE
     Dosage: TOTAL DAILY DOSE (MG): 1140; PUMP SETTING: MD: 4+3; CR: 3; ED: 2,5.
     Route: 050
     Dates: start: 20150518

REACTIONS (2)
  - General physical health deterioration [Fatal]
  - Femur fracture [Unknown]

NARRATIVE: CASE EVENT DATE: 20201029
